FAERS Safety Report 25064860 (Version 1)
Quarter: 2025Q1

REPORT INFORMATION
  Report Type: Spontaneous
  Country: US (occurrence: US)
  Receive Date: 20250311
  Receipt Date: 20250311
  Transmission Date: 20250408
  Serious: No
  Sender: BAYER HEALTHCARE PHARMACEUTICALS INC.
  Company Number: US-BAYER-2025A032176

PATIENT
  Age: 63 Year
  Sex: Male

DRUGS (7)
  1. NUBEQA [Suspect]
     Active Substance: DAROLUTAMIDE
  2. ORGOVYX [Suspect]
     Active Substance: RELUGOLIX
     Indication: Prostate cancer
     Dosage: 360 MG, QD
     Route: 048
  3. ORGOVYX [Suspect]
     Active Substance: RELUGOLIX
     Indication: Prostate cancer
     Dosage: 120 MG, QD
     Route: 048
  4. EZETIMIBE [Concomitant]
     Active Substance: EZETIMIBE
  5. INSULIN GLARGINE [Concomitant]
     Active Substance: INSULIN GLARGINE
  6. NOVOLOG [Concomitant]
     Active Substance: INSULIN ASPART
  7. OLMESARTAN MEDOXOMIL [Concomitant]
     Active Substance: OLMESARTAN MEDOXOMIL

REACTIONS (2)
  - Hot flush [Unknown]
  - Pain in extremity [Unknown]
